FAERS Safety Report 22063015 (Version 1)
Quarter: 2023Q1

REPORT INFORMATION
  Report Type: Spontaneous
  Country: US (occurrence: US)
  Receive Date: 20230306
  Receipt Date: 20230306
  Transmission Date: 20230418
  Serious: Yes (Other)
  Sender: FDA-Public Use
  Company Number: ALC2023US001089

PATIENT
  Age: 29 Year
  Sex: Male

DRUGS (4)
  1. ATROPINE [Suspect]
     Active Substance: ATROPINE
     Indication: Eye pain
     Dosage: DAILY
     Route: 047
  2. ATROPINE [Suspect]
     Active Substance: ATROPINE
     Indication: Visual impairment
  3. DIFLUPREDNATE [Suspect]
     Active Substance: DIFLUPREDNATE
     Indication: Visual impairment
     Dosage: HOURLY
     Route: 047
  4. DIFLUPREDNATE [Suspect]
     Active Substance: DIFLUPREDNATE
     Indication: Eye pain

REACTIONS (4)
  - Endophthalmitis [Unknown]
  - Cataract [Unknown]
  - Nematodiasis [Unknown]
  - Corneal scar [Unknown]
